FAERS Safety Report 7305201-0 (Version None)
Quarter: 2011Q1

REPORT INFORMATION
  Report Type: 
  Country: None (occurrence: None)
  Receive Date: 20110222
  Receipt Date: 20110217
  Transmission Date: 20110831
  Serious: Yes (Hospitalization, Other)
  Sender: FDA-Public Use
  Company Number: US-PFIZER INC-2010153423

PATIENT
  Sex: Male

DRUGS (4)
  1. CHANTIX [Suspect]
     Indication: SMOKING CESSATION THERAPY
     Dosage: STARTER AND CONTINUING MONTH PACKS
     Dates: start: 20070705, end: 20080225
  2. PRILOSEC [Concomitant]
     Indication: GASTROOESOPHAGEAL REFLUX DISEASE
     Dosage: UNK
     Dates: start: 20020101, end: 20090101
  3. CITALOPRAM [Concomitant]
     Indication: DEPRESSION
     Dosage: UNK
     Dates: start: 20050101, end: 20090101
  4. TRAMADOL HYDROCHLORIDE [Concomitant]
     Indication: PAIN
     Dosage: UNK
     Dates: start: 20050101, end: 20090101

REACTIONS (12)
  - INTENTIONAL OVERDOSE [None]
  - HOMICIDAL IDEATION [None]
  - SUICIDE ATTEMPT [None]
  - PARANOIA [None]
  - HALLUCINATION [None]
  - THINKING ABNORMAL [None]
  - AGGRESSION [None]
  - ANGER [None]
  - DEPRESSION [None]
  - DELUSION [None]
  - PSYCHOTIC DISORDER [None]
  - ANXIETY [None]
